FAERS Safety Report 11353405 (Version 1)
Quarter: 2015Q3

REPORT INFORMATION
  Report Type: Spontaneous
  Country: US (occurrence: US)
  Receive Date: 20150807
  Receipt Date: 20150807
  Transmission Date: 20151125
  Serious: No
  Sender: FDA-Public Use
  Company Number: US-JNJFOC-20140915933

PATIENT
  Age: 88 Year
  Sex: Male
  Weight: 81.65 kg

DRUGS (2)
  1. MENS ROGAINE EXTRA STRENGTH [Suspect]
     Active Substance: MINOXIDIL
     Route: 061
  2. MENS ROGAINE EXTRA STRENGTH [Suspect]
     Active Substance: MINOXIDIL
     Indication: HAIR GROWTH ABNORMAL
     Route: 061

REACTIONS (6)
  - Application site dryness [Unknown]
  - Application site scab [Unknown]
  - Application site pruritus [Recovered/Resolved]
  - Application site erosion [Recovered/Resolved]
  - Application site exfoliation [Unknown]
  - Inappropriate schedule of drug administration [Unknown]
